FAERS Safety Report 8984707 (Version 4)
Quarter: 2013Q4

REPORT INFORMATION
  Report Type: Report from Study
  Country: US (occurrence: US)
  Receive Date: 20121225
  Receipt Date: 20131223
  Transmission Date: 20140711
  Serious: Yes (Hospitalization)
  Sender: FDA-Public Use
  Company Number: US-JNJFOC-20121209111

PATIENT
  Age: 24 Year
  Sex: Male
  Weight: 87.54 kg

DRUGS (3)
  1. PALIPERIDONE PALMITATE [Suspect]
     Route: 030
  2. PALIPERIDONE PALMITATE [Suspect]
     Indication: SCHIZOPHRENIA
     Route: 030
     Dates: start: 20120111
  3. DEPAKOTE [Concomitant]
     Indication: DRUG THERAPY
     Route: 065
     Dates: start: 20120111

REACTIONS (2)
  - Psychotic disorder [Recovering/Resolving]
  - Paranoia [Recovered/Resolved]
